FAERS Safety Report 11941934 (Version 1)
Quarter: 2016Q1

REPORT INFORMATION
  Report Type: Spontaneous
  Country: IR (occurrence: IR)
  Receive Date: 20160124
  Receipt Date: 20160124
  Transmission Date: 20160526
  Serious: Yes (Death, Other)
  Sender: FDA-Public Use
  Company Number: IR-MYLANLABS-2016M1001637

PATIENT

DRUGS (2)
  1. CALCITONIN SALMON. [Suspect]
     Active Substance: CALCITONIN SALMON
     Indication: HYPERCALCAEMIA
     Dosage: UNK
  2. PAMIDRONATE [Suspect]
     Active Substance: PAMIDRONATE DISODIUM
     Dosage: UNK

REACTIONS (8)
  - Disease progression [Unknown]
  - Drug resistance [Unknown]
  - Decreased appetite [Unknown]
  - Depressed level of consciousness [Unknown]
  - Nausea [Unknown]
  - Hypercalcaemia [Fatal]
  - Weight decreased [Unknown]
  - Muscular weakness [Unknown]
